FAERS Safety Report 9434177 (Version 1)
Quarter: 2013Q3

REPORT INFORMATION
  Report Type: Spontaneous
  Country: US (occurrence: None)
  Receive Date: 20130730
  Receipt Date: 20130730
  Transmission Date: 20140515
  Serious: No
  Sender: FDA-Public Use
  Company Number: None

PATIENT
  Sex: Female

DRUGS (1)
  1. ENBREL 50MG AMGEN [Suspect]
     Dosage: 50MG EVERY WEEK SUBQ
     Route: 058
     Dates: start: 20130313

REACTIONS (2)
  - Tooth erosion [None]
  - Tooth disorder [None]
